FAERS Safety Report 11588102 (Version 1)
Quarter: 2015Q4

REPORT INFORMATION
  Report Type: Spontaneous
  Country: US (occurrence: US)
  Receive Date: 20151002
  Receipt Date: 20151002
  Transmission Date: 20160304
  Serious: Yes (Hospitalization)
  Sender: FDA-Public Use
  Company Number: US-BEH-2015054128

PATIENT
  Sex: Male
  Weight: 107 kg

DRUGS (27)
  1. PRIVIGEN [Suspect]
     Active Substance: HUMAN IMMUNOGLOBULIN G
     Indication: GRAFT VERSUS HOST DISEASE
     Route: 042
  2. HEPARIN [Concomitant]
     Active Substance: HEPARIN SODIUM
  3. ALLOPURINOL. [Concomitant]
     Active Substance: ALLOPURINOL
  4. BACTRIM [Concomitant]
     Active Substance: SULFAMETHOXAZOLE\TRIMETHOPRIM
  5. HUMALOG [Concomitant]
     Active Substance: INSULIN LISPRO
  6. CELLCEPT [Concomitant]
     Active Substance: MYCOPHENOLATE MOFETIL\MYCOPHENOLATE MOFETIL HYDROCHLORIDE
  7. LASIX [Concomitant]
     Active Substance: FUROSEMIDE
  8. EPIPEN [Concomitant]
     Active Substance: EPINEPHRINE
     Indication: ANAPHYLACTIC REACTION
  9. ALBUTEROL. [Concomitant]
     Active Substance: ALBUTEROL
  10. SODIUM CHLORIDE. [Concomitant]
     Active Substance: SODIUM CHLORIDE
     Indication: FLUSHING
  11. FLOMAX [Concomitant]
     Active Substance: TAMSULOSIN HYDROCHLORIDE
  12. REGLAN [Concomitant]
     Active Substance: METOCLOPRAMIDE HYDROCHLORIDE
  13. VITAMIN D2 [Concomitant]
     Active Substance: ERGOCALCIFEROL
  14. DIPHENHYDRAMINE. [Concomitant]
     Active Substance: DIPHENHYDRAMINE
  15. FOLIC ACID. [Concomitant]
     Active Substance: FOLIC ACID
  16. PANTOPRAZOLE [Concomitant]
     Active Substance: PANTOPRAZOLE SODIUM
  17. LMX [Concomitant]
     Active Substance: LIDOCAINE
  18. ZITHROMAX [Concomitant]
     Active Substance: AZITHROMYCIN DIHYDRATE
  19. MAGNESIUM [Concomitant]
     Active Substance: MAGNESIUM
  20. CULTURELLE [Concomitant]
     Active Substance: LACTOBACILLUS RHAMNOSUS
  21. NORMAL SALINE [Concomitant]
     Active Substance: SODIUM CHLORIDE
  22. PREDNISONE. [Concomitant]
     Active Substance: PREDNISONE
  23. ACYCLOVIR. [Concomitant]
     Active Substance: ACYCLOVIR
  24. MULTIVITAMIN [Concomitant]
     Active Substance: VITAMINS
  25. ACETAMINOPHEN. [Concomitant]
     Active Substance: ACETAMINOPHEN
  26. SINGULAIR [Concomitant]
     Active Substance: MONTELUKAST SODIUM
  27. SPORANOX [Concomitant]
     Active Substance: ITRACONAZOLE

REACTIONS (1)
  - Hernia [Unknown]
